FAERS Safety Report 19963424 (Version 1)
Quarter: 2021Q4

REPORT INFORMATION
  Report Type: Spontaneous
  Country: IT (occurrence: IT)
  Receive Date: 20211018
  Receipt Date: 20211018
  Transmission Date: 20220303
  Serious: Yes (Other)
  Sender: FDA-Public Use
  Company Number: IT-AUROBINDO-AUR-APL-2021-042168

PATIENT
  Sex: Female

DRUGS (6)
  1. BISOPROLOL [Suspect]
     Active Substance: BISOPROLOL
     Indication: Ventricular arrhythmia
     Dosage: UNK
     Route: 065
  2. FLECAINIDE [Suspect]
     Active Substance: FLECAINIDE
     Indication: Ventricular arrhythmia
     Dosage: 50 MILLIGRAM, TWO TIMES A DAY
     Route: 065
  3. METOPROLOL [Suspect]
     Active Substance: METOPROLOL
     Indication: Ventricular arrhythmia
     Dosage: 100 MILLIGRAM, TWO TIMES A DAY
     Route: 065
  4. NADOLOL [Suspect]
     Active Substance: NADOLOL
     Indication: Product used for unknown indication
     Dosage: 80 MILLIGRAM, TWO TIMES A DAY
     Route: 065
  5. MEXILETINE [Suspect]
     Active Substance: MEXILETINE
     Indication: Product used for unknown indication
     Dosage: 100 MILLIGRAM, 3 TIMES A DAY
     Route: 065
  6. HYDROQUINIDINE [Concomitant]
     Active Substance: HYDROQUINIDINE
     Indication: Product used for unknown indication
     Dosage: 150 UNK

REACTIONS (2)
  - Electrocardiogram QT prolonged [Unknown]
  - Drug ineffective for unapproved indication [Unknown]
